FAERS Safety Report 7122264-6 (Version None)
Quarter: 2010Q4

REPORT INFORMATION
  Report Type: 
  Country: None (occurrence: None)
  Receive Date: 20101122
  Receipt Date: 20101122
  Transmission Date: 20110411
  Serious: Yes (Other)
  Sender: FDA-Public Use
  Company Number: None

PATIENT
  Sex: Female
  Weight: 81.8 kg

DRUGS (3)
  1. FLUOXETINE HCL [Suspect]
     Indication: ANXIETY
     Dosage: TRIED SEVERAL TIMES2005 05/2010
  2. FLUOXETINE HCL [Suspect]
     Indication: DEPRESSION
     Dosage: TRIED SEVERAL TIMES2005 05/2010
  3. MIDODRINE HYDROCHLORIDE [Suspect]
     Indication: SYNCOPE
     Dosage: ONLY ABLE TO TAKE BRAND 1994?

REACTIONS (9)
  - ABDOMINAL PAIN [None]
  - CHEST PAIN [None]
  - DEPRESSION [None]
  - DIARRHOEA [None]
  - HALLUCINATION [None]
  - HEADACHE [None]
  - NIGHTMARE [None]
  - PRODUCT QUALITY ISSUE [None]
  - VOMITING [None]
